FAERS Safety Report 8517339-0 (Version None)
Quarter: 2012Q3

REPORT INFORMATION
  Report Type: 
  Country: None (occurrence: None)
  Receive Date: 20120718
  Receipt Date: 20120716
  Transmission Date: 20120928
  Serious: Yes (Other)
  Sender: FDA-Public Use
  Company Number: US-PFIZER INC-2012092871

PATIENT
  Sex: Female

DRUGS (4)
  1. CHANTIX [Suspect]
     Indication: SMOKING CESSATION THERAPY
     Dosage: 0.5MG, 1X/DAY (JUST ONCE)
     Route: 048
     Dates: start: 20120412, end: 20120101
  2. DEPAKOTE [Concomitant]
     Indication: BIPOLAR DISORDER
     Dosage: UNK
  3. PREVPAC [Concomitant]
     Dosage: UNK
  4. XANAX [Concomitant]
     Dosage: UNK

REACTIONS (6)
  - FEELING JITTERY [None]
  - EYE DISORDER [None]
  - HEADACHE [None]
  - VOMITING [None]
  - EYE PAIN [None]
  - INSOMNIA [None]
